FAERS Safety Report 15923544 (Version 2)
Quarter: 2019Q1

REPORT INFORMATION
  Report Type: Spontaneous
  Country: US (occurrence: US)
  Receive Date: 20190205
  Receipt Date: 20190219
  Transmission Date: 20190417
  Serious: No
  Sender: FDA-Public Use
  Company Number: US-ALLERGAN-1822915US

PATIENT
  Age: 31 Year
  Sex: Female

DRUGS (1)
  1. BOTOX [Suspect]
     Active Substance: ONABOTULINUMTOXINA
     Indication: MIGRAINE
     Dosage: 200 UNITS, SINGLE, EVERY 8 WEEKS
     Route: 030
     Dates: start: 2015, end: 2015

REACTIONS (1)
  - Inappropriate schedule of product administration [Unknown]
